FAERS Safety Report 9514541 (Version 1)
Quarter: 2013Q3

REPORT INFORMATION
  Report Type: Spontaneous
  Country: US (occurrence: US)
  Receive Date: 20130911
  Receipt Date: 20130911
  Transmission Date: 20140515
  Serious: Yes (Other)
  Sender: FDA-Public Use
  Company Number: US-BRISTOL-MYERS SQUIBB COMPANY-19347186

PATIENT
  Age: 72 Year
  Sex: Female
  Weight: 97.5 kg

DRUGS (2)
  1. BYETTA PEN DISPOSABLE [Suspect]
     Indication: TYPE 2 DIABETES MELLITUS
  2. GLIPIZIDE [Suspect]

REACTIONS (4)
  - Breast cancer [Unknown]
  - Blood glucose increased [Unknown]
  - Poor quality sleep [Unknown]
  - Product quality issue [Unknown]
